FAERS Safety Report 13389565 (Version 1)
Quarter: 2017Q1

REPORT INFORMATION
  Report Type: Spontaneous
  Country: JP (occurrence: JP)
  Receive Date: 20170330
  Receipt Date: 20170330
  Transmission Date: 20170429
  Serious: Yes (Other)
  Sender: FDA-Public Use
  Company Number: JP-PFIZER INC-2017132368

PATIENT
  Sex: Female

DRUGS (3)
  1. LIPITOR [Suspect]
     Active Substance: ATORVASTATIN CALCIUM
     Indication: ISCHAEMIC HEART DISEASE PROPHYLAXIS
     Route: 048
  2. WARFARIN [Concomitant]
     Active Substance: WARFARIN
  3. ZETIA [Concomitant]
     Active Substance: EZETIMIBE
     Route: 048

REACTIONS (2)
  - Blood triglycerides increased [Unknown]
  - Cerebral haemorrhage [Unknown]
